FAERS Safety Report 10706461 (Version 1)
Quarter: 2015Q1

REPORT INFORMATION
  Report Type: Report from Study
  Country: CA (occurrence: CA)
  Receive Date: 20150113
  Receipt Date: 20150113
  Transmission Date: 20150721
  Serious: Yes (Other)
  Sender: FDA-Public Use
  Company Number: CA-JNJFOC-20150104776

PATIENT
  Age: 72 Year
  Sex: Female
  Weight: 62.4 kg

DRUGS (14)
  1. BETADERM OINTMENT [Concomitant]
     Route: 065
  2. FLUTICASONE PROPIONATE. [Concomitant]
     Active Substance: FLUTICASONE PROPIONATE
     Route: 065
  3. REMICADE [Suspect]
     Active Substance: INFLIXIMAB
     Indication: CROHN^S DISEASE
     Dosage: 34TH INFUSION
     Route: 042
  4. PENTASA [Concomitant]
     Active Substance: MESALAMINE
     Route: 065
  5. PARIET [Concomitant]
     Active Substance: RABEPRAZOLE SODIUM
     Route: 065
  6. DIPROSALIC [Concomitant]
     Active Substance: BETAMETHASONE DIPROPIONATE
     Route: 065
  7. ACCUPRIL [Concomitant]
     Active Substance: QUINAPRIL HYDROCHLORIDE
     Route: 065
  8. NORITATE [Concomitant]
     Active Substance: METRONIDAZOLE
     Route: 065
  9. NORVASC [Concomitant]
     Active Substance: AMLODIPINE BESYLATE
     Route: 065
  10. HYDROXYZINE [Concomitant]
     Active Substance: HYDROXYZINE\HYDROXYZINE HYDROCHLORIDE
     Route: 065
  11. FOLIC ACID. [Concomitant]
     Active Substance: FOLIC ACID
     Route: 065
  12. HYDROCHLOROTHIAZIDE. [Concomitant]
     Active Substance: HYDROCHLOROTHIAZIDE
     Route: 065
  13. IMOVANE [Concomitant]
     Active Substance: ZOPICLONE
     Route: 065
  14. DOXYCYCLINE. [Concomitant]
     Active Substance: DOXYCYCLINE
     Route: 065

REACTIONS (2)
  - Cellulitis [Recovered/Resolved]
  - Eczema [Recovering/Resolving]

NARRATIVE: CASE EVENT DATE: 201412
